FAERS Safety Report 5944732-2 (Version None)
Quarter: 2008Q4

REPORT INFORMATION
  Report Type: 
  Country: None (occurrence: None)
  Receive Date: 20081107
  Receipt Date: 20081106
  Transmission Date: 20090506
  Serious: Yes (Other)
  Sender: FDA-Public Use
  Company Number: TR-BRISTOL-MYERS SQUIBB COMPANY-14396832

PATIENT
  Age: 54 Year
  Sex: Male

DRUGS (1)
  1. BARACLUDE [Suspect]
     Indication: HEPATITIS B
     Route: 048

REACTIONS (4)
  - ALANINE AMINOTRANSFERASE INCREASED [None]
  - ASPARTATE AMINOTRANSFERASE INCREASED [None]
  - HEPATITIS B DNA INCREASED [None]
  - POLLAKIURIA [None]
